FAERS Safety Report 4961485-5 (Version None)
Quarter: 2006Q1

REPORT INFORMATION
  Report Type: 
  Country: None (occurrence: None)
  Receive Date: 20060329
  Receipt Date: 20060314
  Transmission Date: 20060701
  Serious: Yes (Death, Hospitalization)
  Sender: FDA-Public Use
  Company Number: 2004-00862

PATIENT
  Age: 62 Year
  Sex: Male
  Weight: 73 kg

DRUGS (1)
  1. VELCADE [Suspect]
     Indication: MULTIPLE MYELOMA
     Dosage: 2.50 MG, INTRAVENOUS
     Route: 042
     Dates: start: 20041012, end: 20041012

REACTIONS (5)
  - BONE PAIN [None]
  - CARDIAC FAILURE [None]
  - DISEASE PROGRESSION [None]
  - LUNG INFECTION [None]
  - RESPIRATORY DISTRESS [None]
